FAERS Safety Report 9477972 (Version 4)
Quarter: 2014Q1

REPORT INFORMATION
  Report Type: Spontaneous
  Country: US (occurrence: None)
  Receive Date: 20130822
  Receipt Date: 20140327
  Transmission Date: 20141002
  Serious: Yes (Hospitalization, Other)
  Sender: FDA-Public Use
  Company Number: JPI-P-034494

PATIENT
  Age: 50 Year
  Sex: Male
  Weight: 83.2 kg

DRUGS (11)
  1. XYREM [Suspect]
     Indication: INSOMNIA
     Route: 048
     Dates: start: 201108
  2. DESVENLAFAXINE [Concomitant]
  3. BUPROPION HYDROCHLORIDE [Concomitant]
  4. HYDROXYZINE [Concomitant]
  5. PROPRANOLOL [Concomitant]
  6. ACICLOVIR [Concomitant]
  7. LIPITOR (ATORVASTATIN CALCIUM) [Concomitant]
  8. LOSARTAN [Concomitant]
  9. VALIUM [Suspect]
     Indication: PRODUCT USED FOR UNKNOWN INDICATION
  10. XANAX [Suspect]
     Indication: PRODUCT USED FOR UNKNOWN INDICATION
  11. OMEPRAZOLE [Suspect]
     Indication: PRODUCT USED FOR UNKNOWN INDICATION

REACTIONS (8)
  - Unresponsive to stimuli [None]
  - Loss of consciousness [None]
  - Drug withdrawal syndrome [None]
  - Toxicity to various agents [None]
  - Drug interaction [None]
  - Anxiety [None]
  - Tremor [None]
  - Off label use [None]
